FAERS Safety Report 17014844 (Version 14)
Quarter: 2022Q3

REPORT INFORMATION
  Report Type: Spontaneous
  Country: BR (occurrence: BR)
  Receive Date: 20191111
  Receipt Date: 20220825
  Transmission Date: 20221027
  Serious: Yes (Hospitalization, Other)
  Sender: FDA-Public Use
  Company Number: BR-GLAXOSMITHKLINE-BR2016GSK015139

PATIENT

DRUGS (10)
  1. BENLYSTA [Suspect]
     Active Substance: BELIMUMAB
     Indication: Systemic lupus erythematosus
     Dosage: 640 MG, Z, 2 AMPULES OF 120MG AND 1 AMPULE OF 400MG EVERY 28 DAYS
     Route: 042
     Dates: start: 20150622
  2. BENLYSTA [Suspect]
     Active Substance: BELIMUMAB
     Dosage: 620 MG, UNK
     Route: 042
  3. AZATHIOPRINE [Suspect]
     Active Substance: AZATHIOPRINE
     Indication: Product used for unknown indication
     Dosage: UNK
  4. PREDNISOLONE [Suspect]
     Active Substance: PREDNISOLONE
     Indication: Product used for unknown indication
     Dosage: UNK
  5. PENTOXIFYLLINE [Suspect]
     Active Substance: PENTOXIFYLLINE
     Indication: Product used for unknown indication
     Dosage: 400 MG
  6. LYRICA [Suspect]
     Active Substance: PREGABALIN
     Indication: Product used for unknown indication
     Dosage: UNK
  7. CALCIUM [Concomitant]
     Active Substance: CALCIUM
     Indication: Product used for unknown indication
     Dosage: UNK
  8. PLAQUINOL [Concomitant]
     Active Substance: HYDROXYCHLOROQUINE SULFATE
     Indication: Product used for unknown indication
     Dosage: UNK
  9. HYDROXYCHLOROQUINE SULFATE [Concomitant]
     Active Substance: HYDROXYCHLOROQUINE SULFATE
     Indication: Product used for unknown indication
     Dosage: UNK
  10. PREDNISONE [Concomitant]
     Active Substance: PREDNISONE
     Indication: Product used for unknown indication
     Dosage: UNK

REACTIONS (23)
  - Renal pain [Unknown]
  - Wound infection bacterial [Recovered/Resolved]
  - Nephrolithiasis [Unknown]
  - Limb injury [Not Recovered/Not Resolved]
  - Erythema [Recovered/Resolved]
  - Skin disorder [Recovered/Resolved]
  - Pain [Recovered/Resolved]
  - Rash macular [Unknown]
  - Pain in extremity [Unknown]
  - Arthralgia [Unknown]
  - Peripheral swelling [Unknown]
  - Rheumatic disorder [Unknown]
  - Pruritus [Unknown]
  - Disease progression [Unknown]
  - Impaired healing [Unknown]
  - Laboratory test abnormal [Unknown]
  - Overdose [Unknown]
  - Inappropriate schedule of product administration [Recovered/Resolved]
  - Circumstance or information capable of leading to medication error [Recovered/Resolved]
  - Product dose omission issue [Not Recovered/Not Resolved]
  - Product availability issue [Unknown]
  - Underdose [Unknown]
  - Social problem [Unknown]

NARRATIVE: CASE EVENT DATE: 20210101
